FAERS Safety Report 25713634 (Version 3)
Quarter: 2025Q4

REPORT INFORMATION
  Report Type: Report from Study
  Country: CA (occurrence: CA)
  Receive Date: 20250822
  Receipt Date: 20251215
  Transmission Date: 20260118
  Serious: Yes (Other)
  Sender: JOHNSON AND JOHNSON
  Company Number: CA-JNJFOC-20250529510

PATIENT
  Age: 73 Year
  Sex: Male

DRUGS (4)
  1. SIMPONI [Suspect]
     Active Substance: GOLIMUMAB
     Indication: Colitis ulcerative
     Route: 041
     Dates: start: 20250424
  2. SIMPONI [Suspect]
     Active Substance: GOLIMUMAB
     Indication: Rheumatoid arthritis
     Route: 041
  3. SIMPONI [Suspect]
     Active Substance: GOLIMUMAB
     Route: 041
  4. SIMPONI [Suspect]
     Active Substance: GOLIMUMAB
     Route: 041
     Dates: start: 20250424

REACTIONS (6)
  - Spinal operation [Unknown]
  - Rheumatoid arthritis [Not Recovered/Not Resolved]
  - Pneumonia [Unknown]
  - Weight increased [Recovering/Resolving]
  - Oedema peripheral [Recovering/Resolving]
  - Urinary tract infection [Unknown]

NARRATIVE: CASE EVENT DATE: 20250501
